FAERS Safety Report 11844660 (Version 1)
Quarter: 2015Q4

REPORT INFORMATION
  Report Type: Spontaneous
  Country: US (occurrence: None)
  Receive Date: 20151216
  Receipt Date: 20151216
  Transmission Date: 20160305
  Serious: Yes (Other)
  Sender: FDA-Public Use
  Company Number: None

PATIENT
  Age: 54 Year
  Sex: Female
  Weight: 63.5 kg

DRUGS (6)
  1. ESTROTEST [Concomitant]
  2. MULTIPLE HERBALS AND VITAMINS [Concomitant]
  3. AMOXICILLIN 500 MG TEVA [Suspect]
     Active Substance: AMOXICILLIN
     Indication: HELICOBACTER INFECTION
     Route: 048
  4. BUPROPION. [Concomitant]
     Active Substance: BUPROPION
  5. CLARITHROMYCIN 500 MG [Suspect]
     Active Substance: CLARITHROMYCIN
     Indication: HELICOBACTER INFECTION
     Route: 048
  6. OMEPRAZOLE. [Concomitant]
     Active Substance: OMEPRAZOLE

REACTIONS (6)
  - Malaise [None]
  - Haemorrhage [None]
  - Discomfort [None]
  - Dizziness [None]
  - Skin discolouration [None]
  - Skin atrophy [None]

NARRATIVE: CASE EVENT DATE: 20151213
